FAERS Safety Report 5262549-1 (Version None)
Quarter: 2007Q1

REPORT INFORMATION
  Report Type: 
  Country: None (occurrence: None)
  Receive Date: 20070312
  Receipt Date: 20070228
  Transmission Date: 20070707
  Serious: Yes (Hospitalization)
  Sender: FDA-Public Use
  Company Number: 2007AP01362

PATIENT
  Age: 73 Year
  Sex: Male

DRUGS (2)
  1. DIPRIVAN [Suspect]
     Indication: SEDATION
     Dosage: CONTINUOUS ADMINISTRATION
     Route: 042
  2. DIPRIVAN [Suspect]
     Dosage: DOSE INCREASED
     Route: 042

REACTIONS (1)
  - DRUG WITHDRAWAL SYNDROME [None]
